FAERS Safety Report 20608231 (Version 1)
Quarter: 2022Q1

REPORT INFORMATION
  Report Type: Spontaneous
  Country: US (occurrence: None)
  Receive Date: 20220317
  Receipt Date: 20220317
  Transmission Date: 20220423
  Serious: No
  Sender: FDA-Public Use
  Company Number: None

PATIENT
  Age: 70 Year
  Sex: Female

DRUGS (1)
  1. TAXOTERE [Suspect]
     Active Substance: DOCETAXEL

REACTIONS (4)
  - Infusion related reaction [None]
  - Flushing [None]
  - Dyspnoea exertional [None]
  - Hypertension [None]

NARRATIVE: CASE EVENT DATE: 20220316
